FAERS Safety Report 12759149 (Version 3)
Quarter: 2018Q4

REPORT INFORMATION
  Report Type: Spontaneous
  Country: US (occurrence: US)
  Receive Date: 20160919
  Receipt Date: 20181205
  Transmission Date: 20190204
  Serious: Yes (Other)
  Sender: FDA-Public Use
  Company Number: US-009507513-1609USA004466

PATIENT
  Age: 33 Year
  Sex: Female
  Weight: 68.03 kg

DRUGS (1)
  1. NEXPLANON [Suspect]
     Active Substance: ETONOGESTREL
     Dosage: 1 IMPLANT IN LEFT ARM, UNKNOWN FREQUENCY
     Route: 059
     Dates: start: 20160317, end: 20181102

REACTIONS (5)
  - Complication associated with device [Recovered/Resolved]
  - Surgery [Unknown]
  - No adverse event [Unknown]
  - Complication of device removal [Recovered/Resolved]
  - Device dislocation [Recovered/Resolved]

NARRATIVE: CASE EVENT DATE: 2016
